FAERS Safety Report 9301154 (Version 2)
Quarter: 2014Q2

REPORT INFORMATION
  Report Type: Spontaneous
  Country: US (occurrence: US)
  Receive Date: 20130521
  Receipt Date: 20140519
  Transmission Date: 20141212
  Serious: No
  Sender: FDA-Public Use
  Company Number: US-BRISTOL-MYERS SQUIBB COMPANY-17016130

PATIENT
  Age: 68 Year
  Sex: Female

DRUGS (1)
  1. BARACLUDE [Suspect]
     Dosage: UNTIL 12-JUN-2013

REACTIONS (5)
  - Urticaria [Unknown]
  - Rash [Unknown]
  - Impaired healing [Unknown]
  - Pruritus [Unknown]
  - Scratch [Unknown]
